FAERS Safety Report 4301406-1 (Version None)
Quarter: 2004Q1

REPORT INFORMATION
  Report Type: 
  Country: None (occurrence: None)
  Receive Date: 20040219
  Receipt Date: 20040128
  Transmission Date: 20041129
  Serious: Yes (Life-Threatening, Hospitalization)
  Sender: FDA-Public Use
  Company Number: 2004IM000120

PATIENT
  Age: 71 Year
  Sex: Male

DRUGS (9)
  1. ADVAFERON (A643_INTERERON ALFACON-1) [Suspect]
     Indication: HEPATITIS C
     Dosage: 18 MU;QD;SUBCUTANEOUS
     Route: 058
     Dates: start: 20020107, end: 20020211
  2. DILTIAZEM HYDROCHLORIDE [Concomitant]
  3. CLOPERASTINE [Concomitant]
  4. AMBROXOL HYDROCHLORIDE [Concomitant]
  5. EVIPROSTAT [Concomitant]
  6. CLARITHROMYCIN [Concomitant]
  7. INDOMETHACIN [Concomitant]
  8. ZOPICLONE [Concomitant]
  9. FLUTOPRAZEPAM [Concomitant]

REACTIONS (7)
  - CEREBRAL INFARCTION [None]
  - DEHYDRATION [None]
  - DEPRESSED MOOD [None]
  - HYPERHIDROSIS [None]
  - INSOMNIA [None]
  - PYREXIA [None]
  - RASH [None]
